FAERS Safety Report 8042712-7 (Version None)
Quarter: 2012Q1

REPORT INFORMATION
  Report Type: 
  Country: None (occurrence: None)
  Receive Date: 20120112
  Receipt Date: 20120110
  Transmission Date: 20120608
  Serious: Yes (Hospitalization)
  Sender: FDA-Public Use
  Company Number: US-ACTELION-A-US2009-24520

PATIENT

DRUGS (7)
  1. TRACLEER [Suspect]
     Indication: PULMONARY ARTERIAL HYPERTENSION
     Route: 048
     Dates: start: 20090210
  2. REVATIO [Concomitant]
  3. VENTAVIS [Suspect]
     Indication: PULMONARY ARTERIAL HYPERTENSION
     Route: 055
     Dates: start: 20090224
  4. TADALAFIL [Concomitant]
  5. ENBREL [Concomitant]
  6. ARAVA [Concomitant]
  7. OXYGEN [Concomitant]

REACTIONS (10)
  - POST PROCEDURAL COMPLICATION [None]
  - OEDEMA PERIPHERAL [None]
  - PRURITUS GENERALISED [None]
  - HOT FLUSH [None]
  - SEPSIS [None]
  - NIGHT SWEATS [None]
  - EYE SWELLING [None]
  - NASAL CONGESTION [None]
  - SPINAL OPERATION [None]
  - DIARRHOEA [None]
